FAERS Safety Report 21296731 (Version 1)
Quarter: 2022Q3

REPORT INFORMATION
  Report Type: Spontaneous
  Country: US (occurrence: None)
  Receive Date: 20220902
  Receipt Date: 20220902
  Transmission Date: 20221027
  Serious: Yes (Hospitalization)
  Sender: FDA-Public Use
  Company Number: None

PATIENT
  Age: 80 Year
  Sex: Male

DRUGS (2)
  1. APIXABAN [Suspect]
     Active Substance: APIXABAN
     Indication: Atrial fibrillation
     Dates: start: 20220504, end: 20220825
  2. CLOPIDOGREL BISULFATE [Suspect]
     Active Substance: CLOPIDOGREL BISULFATE
     Indication: Vascular operation
     Dates: start: 20220722, end: 20220825

REACTIONS (4)
  - Anaemia [None]
  - Gastric haemorrhage [None]
  - Gastritis [None]
  - Thrombosis [None]

NARRATIVE: CASE EVENT DATE: 20220825
